FAERS Safety Report 16720194 (Version 1)
Quarter: 2019Q4

REPORT INFORMATION
  Report Type: Spontaneous
  Country: US (occurrence: US)
  Receive Date: 20190819
  Receipt Date: 20190819
  Transmission Date: 20200122
  Serious: Yes (Life-Threatening, Disabling)
  Sender: FDA-Public Use
  Company Number: None

PATIENT
  Age: 38 Year
  Sex: Female

DRUGS (1)
  1. LORAZEPAM. [Suspect]
     Active Substance: LORAZEPAM
     Indication: ANXIETY

REACTIONS (6)
  - Skin burning sensation [None]
  - Suffocation feeling [None]
  - Nightmare [None]
  - Drug withdrawal syndrome [None]
  - Screaming [None]
  - Panic disorder [None]

NARRATIVE: CASE EVENT DATE: 20180816
